FAERS Safety Report 6419798-6 (Version None)
Quarter: 2009Q4

REPORT INFORMATION
  Report Type: 
  Country: None (occurrence: None)
  Receive Date: 20091016
  Receipt Date: 20090724
  Transmission Date: 20100525
  Serious: Yes (Hospitalization)
  Sender: FDA-Public Use
  Company Number: 2009S1000355

PATIENT
  Age: 48 Year
  Sex: Female
  Weight: 53.5244 kg

DRUGS (16)
  1. DARVON-N [Suspect]
     Indication: PAIN
     Dosage: 100 MG;PRN;PO
     Route: 048
     Dates: start: 20080404
  2. DARVOCET-N 100 [Suspect]
     Indication: PAIN
     Dosage: 100 MG;Q6H;PO
     Route: 048
     Dates: start: 20081216
  3. BEVACIZUMAB [Suspect]
     Indication: BREAST CANCER
     Dosage: 540 MG;QOW;IV
     Route: 042
     Dates: start: 20081125, end: 20090109
  4. PACLITAXEL [Suspect]
     Indication: BREAST CANCER
     Dosage: 100 MG;QW;IV
     Route: 042
     Dates: start: 20081125, end: 20090109
  5. MORPHINE SULFATE [Suspect]
     Indication: PAIN
     Dosage: 30 MG;BID;PO
     Route: 048
     Dates: start: 20081107
  6. MAGIC MOUTHWASH [Concomitant]
  7. FAMVIR [Concomitant]
  8. DEXAMETHASONE [Concomitant]
  9. LORAZEPAM [Concomitant]
  10. ONDANSETRON [Concomitant]
  11. AMBIEN [Concomitant]
  12. SYNTHROID [Concomitant]
  13. MULTI-VITAMIN [Concomitant]
  14. EFFEXOR [Concomitant]
  15. METOCLOPRAMIDE [Concomitant]
  16. PROCHLORPERAZINE [Concomitant]

REACTIONS (2)
  - CONFUSIONAL STATE [None]
  - OVERDOSE [None]
